FAERS Safety Report 6085882-2 (Version None)
Quarter: 2009Q1

REPORT INFORMATION
  Report Type: 
  Country: None (occurrence: None)
  Receive Date: 20090220
  Receipt Date: 20090218
  Transmission Date: 20090719
  Serious: Yes (Hospitalization)
  Sender: FDA-Public Use
  Company Number: D0060588A

PATIENT
  Age: 7 Year
  Sex: Female

DRUGS (2)
  1. CEFUROXIME [Suspect]
     Indication: URINARY TRACT INFECTION
     Dosage: 10ML TWICE PER DAY
     Route: 048
     Dates: start: 20090205, end: 20090211
  2. NOSE DROPS (UNSPECIFIED) [Concomitant]
     Route: 045
     Dates: start: 20081001

REACTIONS (3)
  - FALL [None]
  - LOSS OF CONSCIOUSNESS [None]
  - SALIVARY HYPERSECRETION [None]
